FAERS Safety Report 23571112 (Version 1)
Quarter: 2024Q1

REPORT INFORMATION
  Report Type: Spontaneous
  Country: US (occurrence: US)
  Receive Date: 20240227
  Receipt Date: 20240227
  Transmission Date: 20240410
  Serious: No
  Sender: FDA-Public Use
  Company Number: US-BIOGEN-2024BI01246979

PATIENT
  Age: 63 Year
  Sex: Female

DRUGS (1)
  1. TYSABRI [Suspect]
     Active Substance: NATALIZUMAB
     Indication: Multiple sclerosis
     Route: 050
     Dates: start: 20200916

REACTIONS (11)
  - Eye pruritus [Not Recovered/Not Resolved]
  - Band sensation [Not Recovered/Not Resolved]
  - Gastrointestinal procedural complication [Unknown]
  - Arthritis [Unknown]
  - Balance disorder [Unknown]
  - Hypotension [Unknown]
  - Fall [Recovered/Resolved]
  - Pain in extremity [Unknown]
  - Limb injury [Unknown]
  - Urticaria [Unknown]
  - Vertigo [Unknown]

NARRATIVE: CASE EVENT DATE: 20240101
